FAERS Safety Report 17105542 (Version 1)
Quarter: 2019Q4

REPORT INFORMATION
  Report Type: Spontaneous
  Country: US (occurrence: US)
  Receive Date: 20191203
  Receipt Date: 20191203
  Transmission Date: 20200122
  Serious: Yes (Hospitalization)
  Sender: FDA-Public Use
  Company Number: US-TEVA-2019-US-1146550

PATIENT
  Age: 56 Year
  Sex: Male

DRUGS (6)
  1. CLOZAPINE. [Suspect]
     Active Substance: CLOZAPINE
     Dosage: EVERY NIGHT AT BEDTIME
     Route: 065
  2. OFLOXACIN. [Concomitant]
     Active Substance: OFLOXACIN
     Indication: OTITIS EXTERNA
     Route: 061
  3. PALIPERIDONE. [Concomitant]
     Active Substance: PALIPERIDONE
     Indication: SCHIZOPHRENIA
     Dosage: AND REDUCED
     Route: 048
  4. CLOZAPINE. [Suspect]
     Active Substance: CLOZAPINE
     Dosage: EVERY NIGHT AT BEDTIME AND INCREASED
     Route: 065
  5. CLOZAPINE. [Suspect]
     Active Substance: CLOZAPINE
     Indication: SCHIZOPHRENIA
     Dosage: EVERY NIGHT AT BEDTIME AND INCREASED
     Route: 065
  6. PALIPERIDONE. [Concomitant]
     Active Substance: PALIPERIDONE
     Dosage: EVERY NIGHT AT BEDTIME
     Route: 048

REACTIONS (2)
  - Dysarthria [Recovering/Resolving]
  - Delirium [Recovered/Resolved]
